FAERS Safety Report 14756783 (Version 1)
Quarter: 2018Q2

REPORT INFORMATION
  Report Type: Spontaneous
  Country: US (occurrence: US)
  Receive Date: 20180413
  Receipt Date: 20180413
  Transmission Date: 20180711
  Serious: No
  Sender: FDA-Public Use
  Company Number: US-BION-006559

PATIENT
  Sex: Female

DRUGS (2)
  1. BAYER ASPIRIN REGIMEN ENTERIC COATED [Suspect]
     Active Substance: ASPIRIN
     Indication: HYPERCHOLESTEROLAEMIA
     Dosage: DOSE: ONCE AT NIGHT,??TABLET/CAPLET/GELCAP,??STRENGTH: 81 MG
     Route: 048
  2. ALEVE [Suspect]
     Active Substance: NAPROXEN SODIUM
     Indication: PAIN
     Dosage: DOSE: AS NEEDED EVERY 8-12,??TABLET/CAPLET/GELCAP
     Route: 048
     Dates: start: 2016, end: 20170730

REACTIONS (6)
  - Contraindicated product administered [Not Recovered/Not Resolved]
  - Fall [Unknown]
  - Asthenia [Recovered/Resolved]
  - Depressed mood [None]
  - Feeling abnormal [Recovered/Resolved]
  - Dizziness [Recovered/Resolved]

NARRATIVE: CASE EVENT DATE: 20170730
